FAERS Safety Report 7529386-6 (Version None)
Quarter: 2011Q2

REPORT INFORMATION
  Report Type: 
  Country: None (occurrence: None)
  Receive Date: 20110607
  Receipt Date: 20110530
  Transmission Date: 20111010
  Serious: Yes (Hospitalization)
  Sender: FDA-Public Use
  Company Number: FR-ROCHE-780207

PATIENT
  Sex: Female

DRUGS (17)
  1. NEXIUM [Concomitant]
  2. NICARDIPINE HCL [Suspect]
     Indication: HYPERTENSION
     Route: 048
     Dates: start: 20110504, end: 20110504
  3. MYLANTA [Suspect]
     Route: 065
  4. PERINDOPRIL ERBUMINE [Concomitant]
  5. METFORMIN HCL [Concomitant]
  6. KIDROLASE [Suspect]
     Dosage: DOSE REPORTED AS:19 KU
     Route: 042
     Dates: start: 20110504, end: 20110504
  7. ATARAX [Suspect]
     Route: 048
  8. METHOTREXATE [Concomitant]
     Dates: start: 20110503
  9. DRIPTANE [Concomitant]
  10. VALACYCLOVIR HYDROCHLORIDE [Concomitant]
  11. ATENOLOL [Concomitant]
  12. METHYLPREDNISOLONE [Suspect]
     Indication: PREMEDICATION
     Route: 042
     Dates: start: 20110504, end: 20110504
  13. ATORVASTATIN [Concomitant]
  14. LEVOTHYROXINE SODIUM [Concomitant]
  15. WHOLE BLOOD [Concomitant]
     Dates: start: 20110504
  16. KYTRIL [Suspect]
     Indication: PREMEDICATION
     Route: 048
     Dates: start: 20110504, end: 20110504
  17. FOLIC ACID [Concomitant]

REACTIONS (5)
  - ACUTE PULMONARY OEDEMA [None]
  - PRURITUS [None]
  - MALAISE [None]
  - ERYTHEMA [None]
  - DYSPNOEA [None]
